FAERS Safety Report 23659449 (Version 1)
Quarter: 2024Q1

REPORT INFORMATION
  Report Type: Spontaneous
  Country: PE (occurrence: PE)
  Receive Date: 20240321
  Receipt Date: 20240321
  Transmission Date: 20240410
  Serious: Yes (Death)
  Sender: FDA-Public Use
  Company Number: PE-AMGEN-PERSP2024056633

PATIENT

DRUGS (1)
  1. XGEVA [Suspect]
     Active Substance: DENOSUMAB
     Indication: Bone giant cell tumour
     Dosage: UNK
     Route: 065

REACTIONS (5)
  - Death [Fatal]
  - Adverse event [Unknown]
  - Anaemia [Unknown]
  - Bone pain [Unknown]
  - Hypocalcaemia [Unknown]
